FAERS Safety Report 4549247-4 (Version None)
Quarter: 2005Q1

REPORT INFORMATION
  Report Type: 
  Country: None (occurrence: None)
  Receive Date: 20050110
  Receipt Date: 20050110
  Transmission Date: 20050727
  Serious: Yes (Life-Threatening, Hospitalization)
  Sender: FDA-Public Use
  Company Number: None

PATIENT
  Age: 71 Year
  Sex: Female
  Weight: 117.4816 kg

DRUGS (4)
  1. IRINOTECAN HCL [Suspect]
     Indication: RECTAL CANCER
     Dosage: 50 MG /M2 IV/HR
     Route: 042
     Dates: start: 20041117
  2. IRINOTECAN HCL [Suspect]
     Indication: RECTAL CANCER
     Dosage: 50 MG /M2 IV/HR
     Route: 042
     Dates: start: 20041124
  3. IRINOTECAN HCL [Suspect]
     Indication: RECTAL CANCER
     Dosage: 50 MG /M2 IV/HR
     Route: 042
     Dates: start: 20041201
  4. CAPECITABINE [Suspect]
     Indication: RECTAL CANCER
     Dosage: 2500 MG DAILY
     Dates: start: 20041117

REACTIONS (14)
  - ANAEMIA [None]
  - ATRIAL FIBRILLATION [None]
  - COAGULOPATHY [None]
  - DEHYDRATION [None]
  - DIARRHOEA [None]
  - EJECTION FRACTION DECREASED [None]
  - GASTROINTESTINAL HAEMORRHAGE [None]
  - GENERAL PHYSICAL HEALTH DETERIORATION [None]
  - HYPOTENSION [None]
  - HYPOXIA [None]
  - METABOLIC ACIDOSIS [None]
  - PNEUMONIA [None]
  - RENAL FAILURE ACUTE [None]
  - THROMBOCYTOPENIA [None]
